FAERS Safety Report 24908462 (Version 1)
Quarter: 2025Q1

REPORT INFORMATION
  Report Type: Report from Study
  Country: CA (occurrence: CA)
  Receive Date: 20250131
  Receipt Date: 20250131
  Transmission Date: 20250409
  Serious: Yes (Hospitalization)
  Sender: AMGEN
  Company Number: CA-BEH-2025193081

PATIENT
  Age: 74 Year
  Sex: Female

DRUGS (2)
  1. AVACOPAN [Suspect]
     Active Substance: AVACOPAN
     Indication: Vasculitis
     Route: 048
     Dates: start: 20241023, end: 202501
  2. AVACOPAN [Suspect]
     Active Substance: AVACOPAN
     Indication: Off label use
     Route: 048
     Dates: start: 20250114

REACTIONS (3)
  - White blood cell count decreased [Unknown]
  - Febrile neutropenia [Unknown]
  - Off label use [Unknown]

NARRATIVE: CASE EVENT DATE: 20241023
